FAERS Safety Report 18385306 (Version 1)
Quarter: 2020Q4

REPORT INFORMATION
  Report Type: Spontaneous
  Country: IT (occurrence: IT)
  Receive Date: 20201014
  Receipt Date: 20201014
  Transmission Date: 20210114
  Serious: Yes (Death, Other)
  Sender: FDA-Public Use
  Company Number: IT-AUROBINDO-AUR-APL-2020-051775

PATIENT
  Age: 6 Year
  Sex: Male
  Weight: 22 kg

DRUGS (13)
  1. MESNA. [Suspect]
     Active Substance: MESNA
     Indication: BURKITT^S LYMPHOMA
     Dosage: 500 MILLIGRAM/SQ. METER
     Route: 065
  2. MESNA. [Suspect]
     Active Substance: MESNA
     Dosage: 3000 MILLIGRAM/SQ. METER, ONCE A DAY
     Route: 065
  3. VINCRISTINE [Suspect]
     Active Substance: VINCRISTINE
     Indication: BURKITT^S LYMPHOMA
     Dosage: 0.4 MILLIGRAM/SQ. METER, ONCE A DAY (CONTINUOUS OVER 4 DAYS)
     Route: 042
  4. CARBOPLATIN CONCENTRATE FOR SOLUTION FOR INFUSION [Suspect]
     Active Substance: CARBOPLATIN
     Indication: BURKITT^S LYMPHOMA
     Dosage: 200 MILLIGRAM/SQ. METER (CONTINUOUS INFUSION OVER 4 DAYS)
     Route: 042
  5. IBRUTINIB [Suspect]
     Active Substance: IBRUTINIB
     Indication: BURKITT^S LYMPHOMA
     Dosage: 70 MILLIGRAM, ONCE A DAY
     Route: 048
  6. DEXAMETHASONE. [Suspect]
     Active Substance: DEXAMETHASONE
     Indication: BURKITT^S LYMPHOMA
     Dosage: 20 MILLIGRAM/SQ. METER, ONCE A DAY (20 MG/M2 IN A DAY IN 3 DIVIDED DOSES (IV/PO))
     Route: 065
  7. IFOSFAMIDE. [Suspect]
     Active Substance: IFOSFAMIDE
     Indication: BURKITT^S LYMPHOMA
     Dosage: 2 GRAM PER SQUARE METRE, ONCE A DAY (OVER 5 DAYS)
     Route: 042
  8. RITUXIMAB. [Suspect]
     Active Substance: RITUXIMAB
     Indication: BURKITT^S LYMPHOMA
     Dosage: 375 MILLIGRAM/SQ. METER
     Route: 065
  9. AMIKACIN. [Concomitant]
     Active Substance: AMIKACIN
     Indication: PRODUCT USED FOR UNKNOWN INDICATION
     Dosage: UNK
     Route: 065
  10. IDARUBICINE [Suspect]
     Active Substance: IDARUBICIN
     Indication: BURKITT^S LYMPHOMA
     Dosage: 10 MILLIGRAM/SQ. METER (OVER 4 HRS)
     Route: 065
  11. GRANULOCYTE COLONY STIMULATING FACTOR [Concomitant]
     Active Substance: GRANULOCYTE COLONY-STIMULATING FACTOR NOS
     Indication: PRODUCT USED FOR UNKNOWN INDICATION
     Dosage: UNK
     Route: 065
  12. CEFTAZIDIME. [Concomitant]
     Active Substance: CEFTAZIDIME
     Indication: PRODUCT USED FOR UNKNOWN INDICATION
     Dosage: UNK
     Route: 065
  13. VANCOMYCIN [Concomitant]
     Active Substance: VANCOMYCIN
     Indication: PRODUCT USED FOR UNKNOWN INDICATION
     Dosage: UNK
     Route: 065

REACTIONS (6)
  - Febrile bone marrow aplasia [Unknown]
  - Product use issue [Unknown]
  - Disease progression [Fatal]
  - Off label use [Unknown]
  - Rash [Unknown]
  - Pyrexia [Recovered/Resolved]
